FAERS Safety Report 7112043-8 (Version None)
Quarter: 2010Q4

REPORT INFORMATION
  Report Type: 
  Country: None (occurrence: None)
  Receive Date: 20101119
  Receipt Date: 20101116
  Transmission Date: 20110411
  Serious: No
  Sender: FDA-Public Use
  Company Number: US-PFIZER INC-2010006595

PATIENT
  Sex: Female
  Weight: 58.96 kg

DRUGS (4)
  1. CHANTIX [Suspect]
     Indication: SMOKING CESSATION THERAPY
     Dosage: UNK
     Route: 048
     Dates: start: 20090101
  2. CHANTIX [Suspect]
     Dosage: 0.5 MG, 1X/DAY
     Dates: start: 20100109
  3. HYDROCODONE [Concomitant]
     Indication: PAIN
     Dosage: UNK
  4. PREMARIN [Concomitant]
     Dosage: UNK

REACTIONS (6)
  - ABDOMINAL DISTENSION [None]
  - ABDOMINAL PAIN LOWER [None]
  - CONSTIPATION [None]
  - HEADACHE [None]
  - MALAISE [None]
  - WITHDRAWAL SYNDROME [None]
